FAERS Safety Report 13154915 (Version 1)
Quarter: 2017Q1

REPORT INFORMATION
  Report Type: Report from Study
  Country: US (occurrence: US)
  Receive Date: 20170126
  Receipt Date: 20170126
  Transmission Date: 20170428
  Serious: No
  Sender: FDA-Public Use
  Company Number: US-AMGEN-USASL2016173138

PATIENT
  Age: 76 Year
  Sex: Male

DRUGS (4)
  1. KYPROLIS [Suspect]
     Active Substance: CARFILZOMIB
     Dosage: 52 MG, QWK
     Route: 065
     Dates: start: 2016
  2. KYPROLIS [Suspect]
     Active Substance: CARFILZOMIB
     Indication: PLASMA CELL MYELOMA
     Dosage: 52 MG, Q2WK
     Route: 065
     Dates: start: 201611, end: 2016
  3. ZOFRAN [Concomitant]
     Active Substance: ONDANSETRON HYDROCHLORIDE
     Indication: PLASMA CELL MYELOMA
     Dosage: UNK
  4. DEXAMETHASONE. [Concomitant]
     Active Substance: DEXAMETHASONE
     Indication: PLASMA CELL MYELOMA
     Dosage: 4 MG, UNK

REACTIONS (7)
  - Blood immunoglobulin G decreased [Unknown]
  - Epistaxis [Unknown]
  - Neuropathy peripheral [Recovered/Resolved]
  - Off label use [Unknown]
  - Platelet count decreased [Unknown]
  - Contusion [Unknown]
  - Throat tightness [Unknown]

NARRATIVE: CASE EVENT DATE: 2016
